FAERS Safety Report 9969938 (Version 1)
Quarter: 2014Q1

REPORT INFORMATION
  Report Type: Spontaneous
  Country: US (occurrence: US)
  Receive Date: 20140306
  Receipt Date: 20140306
  Transmission Date: 20141002
  Serious: No
  Sender: FDA-Public Use
  Company Number: US-SANOFI-AVENTIS-2013SA088824

PATIENT
  Age: 23 Year
  Sex: Male

DRUGS (2)
  1. GAVISCON [Suspect]
     Indication: GASTROOESOPHAGEAL REFLUX DISEASE
  2. GAS-X [Suspect]
     Indication: ERUCTATION

REACTIONS (1)
  - Faeces discoloured [Not Recovered/Not Resolved]
